FAERS Safety Report 18051154 (Version 1)
Quarter: 2020Q3

REPORT INFORMATION
  Report Type: Report from Study
  Country: CO (occurrence: CO)
  Receive Date: 20200721
  Receipt Date: 20200721
  Transmission Date: 20201103
  Serious: Yes (Hospitalization)
  Sender: FDA-Public Use
  Company Number: NVSC2020CO189896

PATIENT
  Age: 8 Year
  Sex: Female

DRUGS (8)
  1. MONTELUKAST SODIUM. [Suspect]
     Active Substance: MONTELUKAST SODIUM
     Indication: ASTHMA
     Dosage: 5 UG, QD
     Route: 048
  2. XOLAIR [Suspect]
     Active Substance: OMALIZUMAB
     Indication: ASTHMA
     Dosage: 300 MG, BIW
     Route: 058
     Dates: start: 20200221
  3. DESLORATADINE. [Suspect]
     Active Substance: DESLORATADINE
     Indication: SNEEZING
  4. MOMETASONE FUROATE. [Concomitant]
     Active Substance: MOMETASONE FUROATE
     Indication: HYPERSENSITIVITY
     Dosage: 2 SPRAY IN EACH NOSTRIL (SINCE 4 YEARS AGO)
     Route: 045
  5. LEVOTHYROXINE. [Concomitant]
     Active Substance: LEVOTHYROXINE
     Indication: CONGENITAL HYPOTHYROIDISM
     Dosage: 100 UG, QD (SINCE SHE WAS 6 DAYS OLD)
     Route: 048
  6. XOLAIR [Suspect]
     Active Substance: OMALIZUMAB
     Dosage: 300 MG, BIW
     Route: 058
     Dates: start: 20200627
  7. DESLORATADINE. [Suspect]
     Active Substance: DESLORATADINE
     Indication: SECRETION DISCHARGE
     Dosage: 5 UG, PRN
     Route: 048
  8. FLUTICASONE,SALMETEROL [Suspect]
     Active Substance: FLUTICASONE PROPIONATE\SALMETEROL XINAFOATE
     Indication: ASTHMA
     Dosage: 2 PUFF, BID (IN THE MORNING AND AT NIGHT)
     Route: 065

REACTIONS (8)
  - Pallor [Not Recovered/Not Resolved]
  - Gait disturbance [Not Recovered/Not Resolved]
  - Pyrexia [Not Recovered/Not Resolved]
  - Abdominal distension [Unknown]
  - Application site bruise [Not Recovered/Not Resolved]
  - Abdominal discomfort [Not Recovered/Not Resolved]
  - Abdominal pain [Recovered/Resolved]
  - Gastroenteritis [Unknown]

NARRATIVE: CASE EVENT DATE: 20200627
